FAERS Safety Report 21353799 (Version 1)
Quarter: 2022Q3

REPORT INFORMATION
  Report Type: Spontaneous
  Country: US (occurrence: None)
  Receive Date: 20220919
  Receipt Date: 20220919
  Transmission Date: 20221027
  Serious: No
  Sender: FDA-Public Use
  Company Number: None

PATIENT
  Age: 42 Year
  Sex: Female
  Weight: 50.89 kg

DRUGS (15)
  1. BRAFTOVI [Suspect]
     Active Substance: ENCORAFENIB
     Indication: Colon cancer
     Dosage: FREQUENCY : DAILY;?
     Route: 048
  2. COLACE [Concomitant]
  3. OMEPRAZOLE [Concomitant]
  4. CYCLOBENZAPRINE [Concomitant]
  5. LIDOCAINE-PRILOCAINE [Concomitant]
  6. MIRALAX [Concomitant]
  7. NALOXONE HCI [Concomitant]
  8. MORPHINE SULFATE ER [Concomitant]
  9. ONDANSETRON [Concomitant]
  10. OXYCODONE [Concomitant]
  11. PROCHLORPERAZINE [Concomitant]
  12. RESTORIL [Concomitant]
  13. SIMETHICONE [Concomitant]
  14. XANAX [Concomitant]
  15. ZOLOFT [Concomitant]

REACTIONS (2)
  - Hospice care [None]
  - Metastasis [None]
